FAERS Safety Report 18133599 (Version 1)
Quarter: 2020Q3

REPORT INFORMATION
  Report Type: Spontaneous
  Country: CA (occurrence: CA)
  Receive Date: 20200811
  Receipt Date: 20200811
  Transmission Date: 20201103
  Serious: Yes (Hospitalization)
  Sender: FDA-Public Use
  Company Number: CA-ACCORD-194728

PATIENT
  Age: 43 Year
  Sex: Female
  Weight: 98 kg

DRUGS (2)
  1. XARELTO [Concomitant]
     Active Substance: RIVAROXABAN
     Indication: PRODUCT USED FOR UNKNOWN INDICATION
     Route: 065
  2. GEMCITABINE/GEMCITABINE HYDROCHLORIDE [Suspect]
     Active Substance: GEMCITABINE\GEMCITABINE HYDROCHLORIDE
     Indication: NEOPLASM MALIGNANT
     Dosage: POWDER FOR SOLUTION INTRAVENOUS
     Route: 065

REACTIONS (19)
  - Chills [Recovered/Resolved]
  - Dehydration [Recovered/Resolved]
  - Vomiting [Recovered/Resolved]
  - Blood chloride increased [Recovered/Resolved]
  - Blood iron decreased [Recovered/Resolved]
  - Haemoglobin decreased [Recovered/Resolved]
  - Iron binding capacity total decreased [Recovered/Resolved]
  - Urinary tract infection [Recovered/Resolved]
  - Functional gastrointestinal disorder [Recovered/Resolved]
  - Pernicious anaemia [Recovered/Resolved]
  - Fatigue [Recovered/Resolved]
  - Tachycardia [Recovered/Resolved]
  - Vitamin B12 decreased [Recovered/Resolved]
  - Hypotension [Recovered/Resolved]
  - Serum ferritin increased [Recovered/Resolved]
  - Carbon dioxide decreased [Recovered/Resolved]
  - Haematocrit decreased [Recovered/Resolved]
  - White blood cell count increased [Recovered/Resolved]
  - Asthenia [Recovered/Resolved]
